FAERS Safety Report 8150334-2 (Version None)
Quarter: 2012Q1

REPORT INFORMATION
  Report Type: 
  Country: None (occurrence: None)
  Receive Date: 20120220
  Receipt Date: 20120214
  Transmission Date: 20120608
  Serious: Yes (Life-Threatening, Hospitalization, Other)
  Sender: FDA-Public Use
  Company Number: US-BAYER-201029752NA

PATIENT
  Age: 38 Year
  Sex: Female
  Weight: 77.551 kg

DRUGS (12)
  1. CIPROFLOXACIN [Concomitant]
     Dosage: 500 MG, UNK
     Route: 048
     Dates: start: 20080726, end: 20080805
  2. YAZ [Suspect]
     Indication: MENSTRUAL CYCLE MANAGEMENT
  3. PRINZIDE [Concomitant]
  4. TRIPHASIL-21 [Concomitant]
     Dosage: UNK
     Dates: start: 20080529
  5. LISINOPRIL [Concomitant]
     Indication: HYPERTENSION
     Dosage: UNK
     Route: 048
     Dates: start: 20060101
  6. LORTAB [Concomitant]
     Dosage: UNK
     Route: 048
     Dates: start: 20080727
  7. HYDROCHLOROTHIAZIDE [Concomitant]
  8. YAZ [Suspect]
     Indication: CONTRACEPTION
     Dosage: UNK UNK, QD
     Route: 048
     Dates: start: 20080401
  9. LOW-OGESTREL-28 [Concomitant]
     Dosage: UNK
     Route: 048
     Dates: end: 20080902
  10. ANALGESICS [Concomitant]
     Indication: PAIN
     Dosage: UNK
     Dates: start: 20080726
  11. ANTIBIOTICS [Concomitant]
     Indication: DIVERTICULITIS
     Dosage: UNK
     Dates: start: 20080726
  12. FLAGYL [Concomitant]
     Dosage: 500 MG, UNK
     Route: 048
     Dates: start: 20080726, end: 20080809

REACTIONS (4)
  - THROMBOSIS [None]
  - NEPHROLITHIASIS [None]
  - DEEP VEIN THROMBOSIS [None]
  - PULMONARY EMBOLISM [None]
